FAERS Safety Report 8542940-8 (Version None)
Quarter: 2012Q3

REPORT INFORMATION
  Report Type: 
  Country: None (occurrence: None)
  Receive Date: 20120727
  Receipt Date: 20120724
  Transmission Date: 20120928
  Serious: No
  Sender: FDA-Public Use
  Company Number: US-PFIZER INC-2012147833

PATIENT
  Sex: Female
  Weight: 68.03 kg

DRUGS (6)
  1. FISH OIL [Concomitant]
     Dosage: UNK
  2. GLUCOSAMINE HYDROCHLORIDE/CHONDROITIN SULFATE [Concomitant]
     Dosage: UNK
  3. SIMVASTATIN [Concomitant]
     Dosage: 10 MG, DAILY
  4. FLAXSEED OIL [Concomitant]
     Dosage: UNK
  5. VITAMIN D [Concomitant]
     Dosage: UNK
  6. ADVIL [Suspect]
     Indication: MYALGIA
     Dosage: UNK, AS NEEDED
     Route: 048
     Dates: start: 20120501, end: 20120601

REACTIONS (1)
  - DRUG INEFFECTIVE [None]
